FAERS Safety Report 7468315-0 (Version None)
Quarter: 2011Q2

REPORT INFORMATION
  Report Type: 
  Country: None (occurrence: None)
  Receive Date: 20110509
  Receipt Date: 20110506
  Transmission Date: 20111010
  Serious: Yes (Death)
  Sender: FDA-Public Use
  Company Number: CA-B.I. PHARMACEUTICALS,INC./RIDGEFIELD-2011-CN-00592CN

PATIENT
  Age: 92 Year
  Sex: Female

DRUGS (7)
  1. DIGOXIN [Concomitant]
  2. ARIMIDEX [Concomitant]
  3. ISOPTIN [Concomitant]
     Dosage: TWICE A DAY
  4. METFORMIN [Concomitant]
  5. CARVEDILOL [Concomitant]
     Dosage: TWICE A DAY
  6. FUROSEMIDE [Concomitant]
  7. PRADAXA [Suspect]
     Indication: ATRIAL FIBRILLATION
     Dosage: 220 MG
     Dates: start: 20110328

REACTIONS (1)
  - CARDIAC ARREST [None]
